FAERS Safety Report 13576669 (Version 1)
Quarter: 2017Q2

REPORT INFORMATION
  Report Type: Spontaneous
  Country: US (occurrence: US)
  Receive Date: 20170524
  Receipt Date: 20170524
  Transmission Date: 20170830
  Serious: Yes (Life-Threatening, Disabling, Other)
  Sender: FDA-Public Use
  Company Number: None

PATIENT
  Age: 57 Year
  Sex: Female
  Weight: 71.82 kg

DRUGS (24)
  1. VALCYLOVIR [Concomitant]
  2. DUREZOL EYE DROPS [Concomitant]
  3. BEANO [Concomitant]
     Active Substance: ASPERGILLUS NIGER .ALPHA.-GALACTOSIDASE
  4. LISINOPRIL. [Concomitant]
     Active Substance: LISINOPRIL
  5. ARIMIDEX [Concomitant]
     Active Substance: ANASTROZOLE
  6. CLONAZAPAM [Concomitant]
     Active Substance: CLONAZEPAM
  7. DIGOXIN. [Concomitant]
     Active Substance: DIGOXIN
  8. METFORMIN [Concomitant]
     Active Substance: METFORMIN HYDROCHLORIDE
  9. ABUTEROL RESCUE INHALER [Concomitant]
  10. REMICADE [Suspect]
     Active Substance: INFLIXIMAB
     Indication: UVEITIS
     Dates: start: 20170407, end: 20170503
  11. MONTELUKAST [Concomitant]
     Active Substance: MONTELUKAST SODIUM
  12. ACYCLOVIR OINTMENT [Concomitant]
     Active Substance: ACYCLOVIR
  13. AMITRIPTYLIN [Concomitant]
     Active Substance: AMITRIPTYLINE
  14. ESZOPICLONE. [Concomitant]
     Active Substance: ESZOPICLONE
  15. LOVASTATIN. [Concomitant]
     Active Substance: LOVASTATIN
  16. DULCOLAX NOS [Concomitant]
     Active Substance: BISACODYL OR DOCUSATE SODIUM
  17. DIALTIZEM [Concomitant]
  18. FOLIC ACID. [Concomitant]
     Active Substance: FOLIC ACID
  19. ARTIFICIAL TEARS [Concomitant]
     Active Substance: GLYCERIN\HYPROMELLOSES\POLYETHYLENE GLYCOL 400
  20. ATENELOL [Concomitant]
     Active Substance: ATENOLOL
  21. RESTASIS [Concomitant]
     Active Substance: CYCLOSPORINE
  22. OMEPRAZOLE DELAYED RELEASE [Concomitant]
     Active Substance: OMEPRAZOLE
  23. METHOTREXATE. [Concomitant]
     Active Substance: METHOTREXATE
  24. MUCINEX DM [Concomitant]
     Active Substance: DEXTROMETHORPHAN HYDROBROMIDE\GUAIFENESIN

REACTIONS (8)
  - Abdominal pain upper [None]
  - Confusional state [None]
  - Liver injury [None]
  - Asthenia [None]
  - Weight increased [None]
  - Hepatic steatosis [None]
  - Syncope [None]
  - Anxiety [None]

NARRATIVE: CASE EVENT DATE: 20170503
